FAERS Safety Report 25954891 (Version 1)
Quarter: 2025Q4

REPORT INFORMATION
  Report Type: Report from Study
  Country: US (occurrence: US)
  Receive Date: 20251024
  Receipt Date: 20251024
  Transmission Date: 20260117
  Serious: Yes (Other)
  Sender: JOHNSON AND JOHNSON
  Company Number: US-JNJFOC-20251027106

PATIENT
  Age: 53 Year
  Sex: Female

DRUGS (4)
  1. SPRAVATO [Suspect]
     Active Substance: ESKETAMINE
     Indication: Depression
     Dosage: ^84 MG, RECENT ADMINISTERED DOSE^
     Route: 045
     Dates: start: 20251020, end: 20251020
  2. SPRAVATO [Suspect]
     Active Substance: ESKETAMINE
     Dosage: ^56 MG, 7 TOTAL DOSES^
     Route: 045
     Dates: start: 20250602, end: 20250714
  3. SPRAVATO [Suspect]
     Active Substance: ESKETAMINE
     Dosage: ^84 MG, 12 TOTAL DOSES^
     Route: 045
     Dates: start: 20250724, end: 20251006
  4. CLONAZEPAM [Concomitant]
     Active Substance: CLONAZEPAM
     Indication: Product used for unknown indication

REACTIONS (1)
  - Hypertension [Unknown]

NARRATIVE: CASE EVENT DATE: 20251020
